FAERS Safety Report 15662966 (Version 1)
Quarter: 2018Q4

REPORT INFORMATION
  Report Type: Spontaneous
  Country: US (occurrence: US)
  Receive Date: 20181127
  Receipt Date: 20181127
  Transmission Date: 20190205
  Serious: Yes (Other)
  Sender: FDA-Public Use
  Company Number: US-SA-2018SA320137

PATIENT
  Age: 28 Year
  Sex: Female

DRUGS (1)
  1. LANTUS [Suspect]
     Active Substance: INSULIN GLARGINE
     Dosage: 14 U, UNK
     Route: 065

REACTIONS (2)
  - Hypoglycaemia [Unknown]
  - Diabetes mellitus inadequate control [Unknown]
